FAERS Safety Report 15802217 (Version 1)
Quarter: 2019Q1

REPORT INFORMATION
  Report Type: Spontaneous
  Country: US (occurrence: US)
  Receive Date: 20190109
  Receipt Date: 20190109
  Transmission Date: 20190417
  Serious: Yes (Life-Threatening, Hospitalization)
  Sender: FDA-Public Use
  Company Number: US-ELI_LILLY_AND_COMPANY-US201901001364

PATIENT
  Age: 61 Year
  Sex: Male

DRUGS (2)
  1. HUMALOG [Suspect]
     Active Substance: INSULIN LISPRO
     Indication: PRODUCT USED FOR UNKNOWN INDICATION
     Dosage: UNK, UNKNOWN
     Route: 058
  2. HUMALOG [Suspect]
     Active Substance: INSULIN LISPRO
     Indication: PRODUCT USED FOR UNKNOWN INDICATION
     Dosage: 10 U, QID
     Route: 058

REACTIONS (4)
  - Pneumonia [Recovered/Resolved]
  - Influenza [Recovered/Resolved]
  - Malaise [Not Recovered/Not Resolved]
  - Respiratory arrest [Recovered/Resolved]

NARRATIVE: CASE EVENT DATE: 201712
